FAERS Safety Report 6209094-4 (Version None)
Quarter: 2009Q2

REPORT INFORMATION
  Report Type: 
  Country: None (occurrence: None)
  Receive Date: 20090529
  Receipt Date: 20090420
  Transmission Date: 20091009
  Serious: Yes (Life-Threatening)
  Sender: FDA-Public Use
  Company Number: US-PFIZER INC-2009200100

PATIENT
  Sex: Male

DRUGS (8)
  1. FLUCONAZOLE [Suspect]
     Indication: FUNGAL PERITONITIS
     Dosage: 200 MG, 1X/DAY
     Route: 042
     Dates: start: 20090415, end: 20090415
  2. FLUCONAZOLE [Suspect]
     Dosage: 100 MG, 1X/DAY
     Route: 042
     Dates: start: 20090416
  3. ESOMEPRAZOLE [Concomitant]
     Dosage: UNK
     Route: 042
     Dates: start: 20090414
  4. ZOSYN [Concomitant]
     Dosage: UNK
     Route: 042
     Dates: start: 20090407
  5. MORPHINE SULFATE [Concomitant]
     Dosage: PRN
     Route: 042
     Dates: start: 20090406
  6. PHENERGAN ^AVENTIS PHARMA^ [Concomitant]
     Dosage: UNK
     Route: 042
     Dates: start: 20090406
  7. FAT EMULSIONS [Concomitant]
     Dosage: UNK
     Route: 042
     Dates: start: 20090408
  8. TPN [Concomitant]
     Dosage: UNK
     Route: 042
     Dates: start: 20090408

REACTIONS (1)
  - GASTROINTESTINAL HAEMORRHAGE [None]
